FAERS Safety Report 6521534-X (Version None)
Quarter: 2009Q4

REPORT INFORMATION
  Report Type: 
  Country: None (occurrence: None)
  Receive Date: 20091230
  Receipt Date: 20091221
  Transmission Date: 20100525
  Serious: Yes (Hospitalization)
  Sender: FDA-Public Use
  Company Number: FR-BRISTOL-MYERS SQUIBB COMPANY-14258081

PATIENT
  Age: 55 Year

DRUGS (4)
  1. CETUXIMAB [Suspect]
     Indication: COLON CANCER
     Dosage: STRENGTH 5 MG/ML,RECENT INFUSION TAKEN ON 18JUN08.
     Route: 042
     Dates: start: 20080116
  2. OXALIPLATIN [Suspect]
     Indication: COLON CANCER
     Dosage: RECENT INFUSION TAKEN ON 18JUN08.
     Route: 042
     Dates: start: 20080116
  3. FLUOROURACIL [Suspect]
     Indication: COLON CANCER
     Route: 042
     Dates: start: 20080116, end: 20080618
  4. FOLINIC ACID [Suspect]
     Indication: COLON CANCER
     Dosage: RECENT INFUSION TAKEN ON 18JUN08.
     Route: 042
     Dates: start: 20080116, end: 20080618

REACTIONS (7)
  - BLOOD SODIUM DECREASED [None]
  - HAEMATURIA [None]
  - HAEMOGLOBIN DECREASED [None]
  - NEUTROPHIL COUNT INCREASED [None]
  - PYREXIA [None]
  - THROMBOCYTOPENIA [None]
  - WHITE BLOOD CELL COUNT INCREASED [None]
